FAERS Safety Report 5659561-7 (Version None)
Quarter: 2008Q1

REPORT INFORMATION
  Report Type: 
  Country: None (occurrence: None)
  Receive Date: 20080311
  Receipt Date: 20080229
  Transmission Date: 20080703
  Serious: Yes (Hospitalization)
  Sender: FDA-Public Use
  Company Number: HQWYE494623MAR06

PATIENT
  Age: 68 Year
  Sex: Male

DRUGS (9)
  1. CORDARONE [Suspect]
     Dosage: NOT PROVIDED-200 MG TABLET
     Route: 048
  2. HEMIGOXINE NATIVELLE [Concomitant]
     Dosage: NOT PROVIDED
     Route: 048
  3. LASILIX [Concomitant]
     Dosage: NOT PROVIDED
     Route: 048
  4. DIFFU K [Concomitant]
     Dosage: NOT PROVIDED
     Route: 048
  5. TAREG [Concomitant]
     Dosage: NOT PROVIDED
     Route: 048
  6. PREVISCAN [Concomitant]
     Dosage: NOT PROVIDED
     Route: 048
  7. MOPRAL [Concomitant]
     Dosage: NOT PROVIDED
     Route: 048
  8. DACARBAZINE [Suspect]
     Indication: METASTATIC MALIGNANT MELANOMA
     Dosage: ^CURES^-100 MG TABLET
     Route: 042
     Dates: start: 20041201
  9. MONO-TILDIEM [Concomitant]
     Dosage: NOT PROVIDED
     Route: 048

REACTIONS (1)
  - INTERSTITIAL LUNG DISEASE [None]
